FAERS Safety Report 19202008 (Version 1)
Quarter: 2021Q2

REPORT INFORMATION
  Report Type: Spontaneous
  Country: TH (occurrence: TH)
  Receive Date: 20210502
  Receipt Date: 20210502
  Transmission Date: 20210717
  Serious: Yes (Other)
  Sender: FDA-Public Use
  Company Number: NVSC2021TH089179

PATIENT
  Age: 52 Year
  Sex: Female

DRUGS (3)
  1. FULVESTRANT. [Suspect]
     Active Substance: FULVESTRANT
     Indication: HER2 POSITIVE BREAST CANCER
     Dosage: UNK
     Route: 065
  2. PIQRAY [Suspect]
     Active Substance: ALPELISIB
     Indication: HER2 POSITIVE BREAST CANCER
     Dosage: 300 MG, QD
     Route: 065
     Dates: start: 20200925, end: 20210304
  3. PACLITAXEL. [Suspect]
     Active Substance: PACLITAXEL
     Indication: HER2 POSITIVE BREAST CANCER
     Route: 065

REACTIONS (11)
  - HER2 positive breast cancer [Unknown]
  - Stomatitis [Unknown]
  - Hyperglycaemia [Unknown]
  - Weight decreased [Unknown]
  - Abdominal pain [Unknown]
  - Dyspepsia [Unknown]
  - Decreased appetite [Unknown]
  - Malignant neoplasm progression [Unknown]
  - Carcinoembryonic antigen increased [Unknown]
  - Mucosal inflammation [Unknown]
  - Glycosylated haemoglobin [Unknown]

NARRATIVE: CASE EVENT DATE: 20201022
